FAERS Safety Report 24836924 (Version 1)
Quarter: 2025Q1

REPORT INFORMATION
  Report Type: Spontaneous
  Country: CN (occurrence: CN)
  Receive Date: 20250113
  Receipt Date: 20250113
  Transmission Date: 20250409
  Serious: Yes (Life-Threatening)
  Sender: NOVAST LABORATORIES LTD
  Company Number: CN-NOVAST LABORATORIES INC.-2024NOV000350

PATIENT

DRUGS (1)
  1. METOPROLOL SUCCINATE [Suspect]
     Active Substance: METOPROLOL SUCCINATE
     Indication: Hypertension
     Route: 048
     Dates: start: 20241221, end: 20241222

REACTIONS (4)
  - Heart rate increased [Recovering/Resolving]
  - Cyanosis [Recovering/Resolving]
  - Tachypnoea [Recovering/Resolving]
  - Oedema peripheral [Recovering/Resolving]

NARRATIVE: CASE EVENT DATE: 20241222
